FAERS Safety Report 4693639-X (Version None)
Quarter: 2005Q2

REPORT INFORMATION
  Report Type: 
  Country: None (occurrence: None)
  Receive Date: 20050616
  Receipt Date: 20050531
  Transmission Date: 20051028
  Serious: Yes (Death)
  Sender: FDA-Public Use
  Company Number: 11395

PATIENT
  Sex: Female

DRUGS (3)
  1. EPIRUBICIN [Suspect]
     Indication: BREAST CANCER
     Dosage: 90 MG/M2 PER_CYCLE IV
     Route: 042
     Dates: end: 19971101
  2. PACLITAXEL [Suspect]
     Indication: BREAST CANCER
     Dosage: 175 MG/M2 PER_CYCLE IV
     Route: 042
     Dates: end: 19971101
  3. MITOXANTRONE [Suspect]
     Indication: BREAST CANCER

REACTIONS (2)
  - CARDIAC FAILURE [None]
  - CARDIOMYOPATHY [None]
